FAERS Safety Report 7972161-9 (Version None)
Quarter: 2011Q4

REPORT INFORMATION
  Report Type: 
  Country: None (occurrence: None)
  Receive Date: 20111212
  Receipt Date: 20111207
  Transmission Date: 20120403
  Serious: Yes (Other)
  Sender: FDA-Public Use
  Company Number: US-MERCK-1112USA01092

PATIENT
  Sex: Female

DRUGS (4)
  1. RECLAST [Suspect]
     Route: 041
     Dates: start: 20080301
  2. BONIVA [Suspect]
     Route: 041
     Dates: end: 20071201
  3. FOSAMAX [Suspect]
     Route: 048
  4. ACTONEL [Suspect]
     Route: 065
     Dates: start: 20080301

REACTIONS (1)
  - FEMUR FRACTURE [None]
